FAERS Safety Report 11717552 (Version 1)
Quarter: 2015Q4

REPORT INFORMATION
  Report Type: Spontaneous
  Country: US (occurrence: US)
  Receive Date: 20151110
  Receipt Date: 20151110
  Transmission Date: 20160304
  Serious: No
  Sender: FDA-Public Use
  Company Number: US-TEVA-594526USA

PATIENT
  Age: 81 Year
  Sex: Male

DRUGS (1)
  1. CELECOXIB. [Suspect]
     Active Substance: CELECOXIB
     Indication: ARTHRITIS
     Route: 048

REACTIONS (4)
  - Hypersensitivity [Unknown]
  - Flushing [Unknown]
  - Product substitution issue [Recovered/Resolved]
  - Head discomfort [Unknown]
